FAERS Safety Report 12432659 (Version 1)
Quarter: 2016Q2

REPORT INFORMATION
  Report Type: Spontaneous
  Country: US (occurrence: US)
  Receive Date: 20160603
  Receipt Date: 20160603
  Transmission Date: 20160815
  Serious: No
  Sender: FDA-Public Use
  Company Number: US-IPCA LABORATORIES LIMITED-IPC201604-000374

PATIENT
  Sex: Female

DRUGS (10)
  1. NOVOLOG [Suspect]
     Active Substance: INSULIN ASPART
  2. LISINOPRIL. [Suspect]
     Active Substance: LISINOPRIL
  3. LIPITOR [Suspect]
     Active Substance: ATORVASTATIN CALCIUM
  4. METOPROLOL TARTRATE. [Suspect]
     Active Substance: METOPROLOL TARTRATE
  5. NITROGLYCERIN. [Suspect]
     Active Substance: NITROGLYCERIN
  6. LASIX [Suspect]
     Active Substance: FUROSEMIDE
  7. GLUCOPHAGE [Suspect]
     Active Substance: METFORMIN HYDROCHLORIDE
  8. LEVEMIR [Suspect]
     Active Substance: INSULIN DETEMIR
  9. HUMALOG [Suspect]
     Active Substance: INSULIN LISPRO
  10. METFORMIN HYDROCHLORIDE. [Suspect]
     Active Substance: METFORMIN HYDROCHLORIDE

REACTIONS (1)
  - Chest pain [Unknown]
